FAERS Safety Report 16586872 (Version 1)
Quarter: 2019Q3

REPORT INFORMATION
  Report Type: Report from Study
  Country: US (occurrence: US)
  Receive Date: 20190717
  Receipt Date: 20190717
  Transmission Date: 20191004
  Serious: Yes (Death, Other)
  Sender: FDA-Public Use
  Company Number: US-GILEAD-2019-0418727

PATIENT
  Age: 54 Year
  Sex: Male

DRUGS (9)
  1. AMBRISENTAN [Suspect]
     Active Substance: AMBRISENTAN
     Indication: PULMONARY HYPERTENSION
     Dosage: 10 MG, QD
     Route: 065
  2. SIMVASTATIN. [Concomitant]
     Active Substance: SIMVASTATIN
  3. TADALAFIL. [Concomitant]
     Active Substance: TADALAFIL
  4. PANTOPRAZOLE [Concomitant]
     Active Substance: PANTOPRAZOLE
  5. CARVEDILOL. [Concomitant]
     Active Substance: CARVEDILOL
  6. ENALAPRIL [Concomitant]
     Active Substance: ENALAPRIL
  7. REMODULIN [Concomitant]
     Active Substance: TREPROSTINIL
  8. TYVASO [Concomitant]
     Active Substance: TREPROSTINIL
  9. SPIRONOLACTONE. [Concomitant]
     Active Substance: SPIRONOLACTONE

REACTIONS (1)
  - Death [Fatal]

NARRATIVE: CASE EVENT DATE: 20190713
